FAERS Safety Report 23035307 (Version 4)
Quarter: 2023Q4

REPORT INFORMATION
  Report Type: Report from Study
  Country: CA (occurrence: CA)
  Receive Date: 20231005
  Receipt Date: 20231208
  Transmission Date: 20240110
  Serious: Yes (Hospitalization, Other)
  Sender: FDA-Public Use
  Company Number: CA-AstraZeneca-2023A222905

PATIENT
  Sex: Female
  Weight: 75 kg

DRUGS (5)
  1. ENHERTU [Suspect]
     Active Substance: FAM-TRASTUZUMAB DERUXTECAN-NXKI
     Indication: HER2 negative breast cancer
     Dosage: 331.3 MG, ONCE EVERY 3 WK
     Route: 042
     Dates: start: 20230404
  2. ENHERTU [Suspect]
     Active Substance: FAM-TRASTUZUMAB DERUXTECAN-NXKI
     Dosage: 339 MG, ONCE EVERY 3 WK
     Route: 042
     Dates: start: 20230404
  3. ENHERTU [Suspect]
     Active Substance: FAM-TRASTUZUMAB DERUXTECAN-NXKI
     Dosage: 330 MG, ONCE EVERY 3 WK
     Route: 042
     Dates: start: 20230404
  4. ENHERTU [Suspect]
     Active Substance: FAM-TRASTUZUMAB DERUXTECAN-NXKI
     Dosage: 334 MG, ONCE EVERY 3 WK
     Route: 042
     Dates: start: 20230404
  5. FRAGMIN [Concomitant]
     Active Substance: DALTEPARIN SODIUM
     Indication: Product used for unknown indication
     Dosage: UNK
     Route: 065

REACTIONS (4)
  - Deep vein thrombosis [Unknown]
  - Oesophageal haemorrhage [Unknown]
  - Thrombosis [Unknown]
  - Pain in extremity [Unknown]
